FAERS Safety Report 9416829 (Version 2)
Quarter: 2013Q3

REPORT INFORMATION
  Report Type: Report from Study
  Country: US (occurrence: US)
  Receive Date: 20130724
  Receipt Date: 20130812
  Transmission Date: 20140515
  Serious: Yes (Death, Life-Threatening, Hospitalization)
  Sender: FDA-Public Use
  Company Number: US-EISAI INC-E7389-04034-CLI-US

PATIENT
  Age: 49 Year
  Sex: Male
  Weight: 82 kg

DRUGS (11)
  1. E7389 (BOLD) [Suspect]
     Indication: SARCOMA
     Route: 041
     Dates: start: 20130529, end: 20130612
  2. E7389 (BOLD) [Suspect]
     Route: 041
     Dates: start: 20130515, end: 20130515
  3. AMANTADINE HCL [Concomitant]
     Indication: PARKINSON^S DISEASE
     Route: 048
     Dates: end: 20130715
  4. BACLOFEN [Concomitant]
     Indication: PARKINSON^S DISEASE
     Route: 048
     Dates: end: 20130715
  5. CARBIDOPA-LEVODOPA [Concomitant]
     Indication: PARKINSON^S DISEASE
     Route: 048
     Dates: end: 20130715
  6. CLONAZEPAM [Concomitant]
     Indication: PARKINSON^S DISEASE
     Route: 048
     Dates: end: 20130715
  7. KEPPRA [Concomitant]
     Indication: CONVULSION
     Route: 048
     Dates: end: 20130715
  8. OMEPRAZOLE [Concomitant]
     Indication: GASTROOESOPHAGEAL REFLUX DISEASE
     Route: 048
     Dates: end: 20130715
  9. OXYCODONE [Concomitant]
     Indication: PAIN
     Route: 048
     Dates: end: 20130715
  10. PREDNISONE [Concomitant]
     Indication: DECREASED APPETITE
     Route: 048
     Dates: end: 20130715
  11. SENNA [Concomitant]
     Indication: CONSTIPATION
     Route: 048
     Dates: end: 20130715

REACTIONS (3)
  - Convulsion [Not Recovered/Not Resolved]
  - Respiratory failure [Fatal]
  - Pulmonary embolism [Not Recovered/Not Resolved]
